FAERS Safety Report 19962393 (Version 2)
Quarter: 2021Q4

REPORT INFORMATION
  Report Type: Other
  Country: MX (occurrence: None)
  Receive Date: 20211018
  Receipt Date: 20211105
  Transmission Date: 20220303
  Serious: Yes (Hospitalization)
  Sender: FDA-Public Use
  Company Number: MX-ROCHE-2937103

PATIENT
  Age: 44 Year
  Sex: Female

DRUGS (3)
  1. TOCILIZUMAB [Suspect]
     Active Substance: TOCILIZUMAB
     Indication: Rheumatoid arthritis
     Dosage: TOCILIZUMAB VIAL DE 200MG/10ML
     Route: 042
     Dates: start: 20201211
  2. PREDNISONE [Concomitant]
     Active Substance: PREDNISONE
     Indication: Rheumatoid arthritis
     Dosage: 1 TABLET ORAL DAILY
     Route: 048
     Dates: start: 202012, end: 20211021
  3. PREDNISONE [Concomitant]
     Active Substance: PREDNISONE
     Dosage: 1/2 TABLET ORAL DAILY
     Route: 048
     Dates: start: 20211021

REACTIONS (4)
  - Dyskinesia [Unknown]
  - Headache [Unknown]
  - Anxiety [Unknown]
  - Tremor [Unknown]

NARRATIVE: CASE EVENT DATE: 20211013
